FAERS Safety Report 4927886-6 (Version None)
Quarter: 2006Q1

REPORT INFORMATION
  Report Type: 
  Country: None (occurrence: None)
  Receive Date: 20060228
  Receipt Date: 20060220
  Transmission Date: 20060701
  Serious: Yes (Other)
  Sender: FDA-Public Use
  Company Number: ES-GLAXOSMITHKLINE-B0413659A

PATIENT
  Age: 28 Year
  Sex: Female

DRUGS (1)
  1. ZYNTABAC [Suspect]
     Indication: SMOKING CESSATION THERAPY
     Route: 048
     Dates: start: 20060101, end: 20060201

REACTIONS (3)
  - CONDITION AGGRAVATED [None]
  - NO REACTION ON PREVIOUS EXPOSURE TO DRUG [None]
  - PSORIASIS [None]
